FAERS Safety Report 8473098-1 (Version None)
Quarter: 2012Q2

REPORT INFORMATION
  Report Type: 
  Country: None (occurrence: None)
  Receive Date: 20120627
  Receipt Date: 20120615
  Transmission Date: 20120825
  Serious: No
  Sender: FDA-Public Use
  Company Number: US-ASTRAZENECA-2012SE39155

PATIENT
  Age: 45 Year
  Sex: Female
  Weight: 72.6 kg

DRUGS (6)
  1. SEROQUEL XR [Suspect]
     Route: 048
  2. KLONOPIN [Concomitant]
     Indication: NERVOUS SYSTEM DISORDER
  3. SEROQUEL XR [Suspect]
     Indication: MAJOR DEPRESSION
     Route: 048
  4. SEROQUEL XR [Suspect]
     Indication: SLEEP DISORDER
     Route: 048
  5. SEROQUEL XR [Suspect]
     Route: 048
  6. OXYCODONE HCL [Concomitant]
     Indication: PAIN

REACTIONS (9)
  - ARTHRITIS [None]
  - LOWER LIMB FRACTURE [None]
  - INTENTIONAL DRUG MISUSE [None]
  - INTERVERTEBRAL DISC DEGENERATION [None]
  - FALL [None]
  - ADVERSE EVENT [None]
  - DEPRESSION [None]
  - LIGAMENT SPRAIN [None]
  - BLOOD CHOLESTEROL INCREASED [None]
